FAERS Safety Report 7033979-2 (Version None)
Quarter: 2010Q4

REPORT INFORMATION
  Report Type: 
  Country: None (occurrence: None)
  Receive Date: 20101005
  Receipt Date: 20100922
  Transmission Date: 20110411
  Serious: Yes (Hospitalization)
  Sender: FDA-Public Use
  Company Number: US-003767

PATIENT
  Sex: Male

DRUGS (1)
  1. DEGARELIX 240MG [Suspect]
     Indication: PROSTATE CANCER
     Dosage: 240MG 1X SUBCUTANEOUS
     Route: 058
     Dates: start: 20100901

REACTIONS (1)
  - CEREBROVASCULAR ACCIDENT [None]
